FAERS Safety Report 5918730-9 (Version None)
Quarter: 2008Q4

REPORT INFORMATION
  Report Type: 
  Country: None (occurrence: None)
  Receive Date: 20081015
  Receipt Date: 20080707
  Transmission Date: 20090506
  Serious: No
  Sender: FDA-Public Use
  Company Number: US-ASTRAZENECA-2008UW13513

PATIENT
  Age: 69 Year
  Sex: Female
  Weight: 86.2 kg

DRUGS (16)
  1. SYMBICORT [Suspect]
     Indication: ASTHMA
     Dosage: 80/4.5 2 INHALATIONS TWICE A DAY
     Route: 055
  2. SYMBICORT [Suspect]
     Indication: CHRONIC OBSTRUCTIVE PULMONARY DISEASE
     Dosage: 80/4.5 2 INHALATIONS TWICE A DAY
     Route: 055
  3. SYMBICORT [Suspect]
     Dosage: 80/4.5 1 INHALATION TWICE A DAY
     Route: 055
  4. SYMBICORT [Suspect]
     Dosage: 80/4.5 1 INHALATION TWICE A DAY
     Route: 055
  5. NEXIUM [Concomitant]
     Route: 048
  6. WARFARIN SODIUM [Concomitant]
  7. FOLIC ACID [Concomitant]
  8. FUROSEMIDE [Concomitant]
  9. LEVOTHYROXINE SODIUM [Concomitant]
  10. CLIMARA [Concomitant]
  11. FLECAINIDE ACETATE [Concomitant]
  12. ATENOLOL [Concomitant]
     Route: 048
  13. KLOR-CON [Concomitant]
  14. CENTRUM [Concomitant]
  15. CARDIO OMEGA 3 [Concomitant]
  16. PROAIR HFA [Concomitant]

REACTIONS (2)
  - ACTIVITIES OF DAILY LIVING IMPAIRED [None]
  - NERVOUSNESS [None]
